FAERS Safety Report 16529381 (Version 1)
Quarter: 2019Q3

REPORT INFORMATION
  Report Type: Spontaneous
  Country: US (occurrence: US)
  Receive Date: 20190704
  Receipt Date: 20190704
  Transmission Date: 20191004
  Serious: No
  Sender: FDA-Public Use
  Company Number: US-GW PHARMA-201903USGW0814

PATIENT

DRUGS (7)
  1. ZONISAMIDE. [Concomitant]
     Active Substance: ZONISAMIDE
     Indication: INFANTILE SPASMS
     Dosage: 2CAPSULE, QD AT NIGHT AND TAPERING OFF
     Route: 065
     Dates: start: 20181016
  2. OXCARBAZEPINE. [Concomitant]
     Active Substance: OXCARBAZEPINE
     Indication: INFANTILE SPASMS
     Dosage: 6 MILLILITER, BID (43 MG/KG/DAY)
     Route: 065
     Dates: start: 20150305
  3. LACOSAMIDE. [Concomitant]
     Active Substance: LACOSAMIDE
     Indication: INFANTILE SPASMS
     Dosage: 10 MILLILITER, BID (12MG/KG/D)
     Route: 065
     Dates: start: 20160621
  4. EPIDIOLEX [Suspect]
     Active Substance: CANNABIDIOL
     Indication: INFANTILE SPASMS
     Dosage: 100 MILLIGRAM, BID, 12 MG/KG/DAY
     Route: 048
     Dates: start: 20190129
  5. RUFINAMIDE [Concomitant]
     Active Substance: RUFINAMIDE
     Indication: PRODUCT USED FOR UNKNOWN INDICATION
     Dosage: 5 ML, QD
     Route: 065
     Dates: start: 20190304
  6. CLONAZEPAM. [Concomitant]
     Active Substance: CLONAZEPAM
     Indication: INFANTILE SPASMS
     Dosage: 1 TAB/2TABS (0.22MG/KG/DAY)
     Route: 065
     Dates: start: 20150119
  7. LEVETIRACETAM. [Concomitant]
     Active Substance: LEVETIRACETAM
     Indication: INFANTILE SPASMS
     Dosage: 5 MILLILITER, BID (60MG/KG/D)
     Route: 065
     Dates: start: 20150119

REACTIONS (1)
  - Weight increased [Recovering/Resolving]

NARRATIVE: CASE EVENT DATE: 20190320
